FAERS Safety Report 19124143 (Version 1)
Quarter: 2021Q2

REPORT INFORMATION
  Report Type: Spontaneous
  Country: FR (occurrence: FR)
  Receive Date: 20210412
  Receipt Date: 20210412
  Transmission Date: 20210717
  Serious: Yes (Death, Other)
  Sender: FDA-Public Use
  Company Number: FR-BRISTOL-MYERS SQUIBB COMPANY-BMS-2021-033300

PATIENT
  Age: 76 Year
  Sex: Male
  Weight: 129 kg

DRUGS (2)
  1. PLAVIX [Suspect]
     Active Substance: CLOPIDOGREL BISULFATE
     Indication: CEREBROVASCULAR ACCIDENT PROPHYLAXIS
     Dosage: 1 DF PER DAY
     Route: 048
     Dates: end: 20210113
  2. ELIQUIS [Suspect]
     Active Substance: APIXABAN
     Indication: CEREBROVASCULAR ACCIDENT PROPHYLAXIS
     Dosage: 2 DF PER DAY
     Route: 048
     Dates: end: 20210113

REACTIONS (2)
  - Shock haemorrhagic [Fatal]
  - Septic shock [Fatal]

NARRATIVE: CASE EVENT DATE: 20210115
